FAERS Safety Report 7339224-2 (Version None)
Quarter: 2011Q1

REPORT INFORMATION
  Report Type: 
  Country: None (occurrence: None)
  Receive Date: 20110308
  Receipt Date: 20110302
  Transmission Date: 20110831
  Serious: Yes (Hospitalization)
  Sender: FDA-Public Use
  Company Number: BR-US-EMD SERONO, INC.-7022393

PATIENT
  Sex: Female

DRUGS (10)
  1. DIGESAN [Concomitant]
  2. PARACETAMOL [Concomitant]
  3. GABAPENTIN [Concomitant]
  4. TAMISA [Concomitant]
     Indication: CONTRACEPTION
  5. CITALOPRAM HYDROBROMIDE [Concomitant]
  6. REBIF [Suspect]
     Indication: RELAPSING-REMITTING MULTIPLE SCLEROSIS
     Route: 058
     Dates: start: 20100810
  7. PROPRANOLOL [Concomitant]
  8. PANTOPRAZOLE [Concomitant]
  9. HYDROCORTISONE [Concomitant]
  10. OMEPRAZOLE [Concomitant]

REACTIONS (3)
  - INJECTION SITE HAEMATOMA [None]
  - INJECTION SITE ERYTHEMA [None]
  - MUSCULAR WEAKNESS [None]
